APPROVED DRUG PRODUCT: TILADE
Active Ingredient: NEDOCROMIL SODIUM
Strength: 0.5%
Dosage Form/Route: SOLUTION;INHALATION
Application: N020750 | Product #001
Applicant: SANOFI AVENTIS US LLC
Approved: Oct 1, 1997 | RLD: No | RS: No | Type: DISCN